FAERS Safety Report 5226191-0 (Version None)
Quarter: 2007Q1

REPORT INFORMATION
  Report Type: 
  Country: None (occurrence: None)
  Receive Date: 20070201
  Receipt Date: 20070123
  Transmission Date: 20070707
  Serious: Yes (Other)
  Sender: FDA-Public Use
  Company Number: DE-ROCHE-476421

PATIENT
  Age: 55 Year
  Sex: Female

DRUGS (2)
  1. CELLCEPT [Suspect]
     Route: 048
  2. URBASON [Concomitant]

REACTIONS (5)
  - INTERVERTEBRAL DISC PROTRUSION [None]
  - OSTEOCHONDROSIS [None]
  - PARESIS [None]
  - SPINAL COLUMN STENOSIS [None]
  - SPINAL OSTEOARTHRITIS [None]
